FAERS Safety Report 19686435 (Version 2)
Quarter: 2021Q3

REPORT INFORMATION
  Report Type: Spontaneous
  Country: JP (occurrence: JP)
  Receive Date: 20210811
  Receipt Date: 20210913
  Transmission Date: 20211014
  Serious: Yes (Other)
  Sender: FDA-Public Use
  Company Number: JP-009507513-2108JPN000582J

PATIENT
  Age: 32 Year
  Sex: Male
  Weight: 40 kg

DRUGS (3)
  1. CISPLATIN. [Suspect]
     Active Substance: CISPLATIN
     Indication: TONGUE CARCINOMA STAGE IV
     Dosage: 100 MILLIGRAM, EVERY 3 WEEKS
     Route: 041
     Dates: start: 20210720, end: 20210720
  2. KEYTRUDA [Suspect]
     Active Substance: PEMBROLIZUMAB
     Indication: TONGUE CARCINOMA STAGE IV
     Dosage: 200 MILLIGRAM, EVERY 3 WEEKS
     Route: 041
     Dates: start: 20210720, end: 20210720
  3. 5?FU [FLUOROURACIL] [Suspect]
     Active Substance: FLUOROURACIL
     Indication: TONGUE CARCINOMA STAGE IV
     Dosage: THE DOSE OF 1 CYCLE WAS 1000 MILLIGRAM (ADMINISTERED FOR 4 DAYS) AND IT REPEATED EVERY 3 WEEKS
     Route: 041
     Dates: start: 20210720, end: 20210723

REACTIONS (2)
  - Myelosuppression [Recovered/Resolved]
  - Pyrexia [Recovered/Resolved]

NARRATIVE: CASE EVENT DATE: 20210730
